FAERS Safety Report 13900416 (Version 1)
Quarter: 2017Q3

REPORT INFORMATION
  Report Type: Spontaneous
  Country: GB (occurrence: GB)
  Receive Date: 20170823
  Receipt Date: 20170823
  Transmission Date: 20171127
  Serious: Yes (Life-Threatening, Hospitalization, Disabling, Other)
  Sender: FDA-Public Use
  Company Number: GB-MYLANLABS-2017M1051012

PATIENT

DRUGS (19)
  1. PREGABALIN. [Concomitant]
     Active Substance: PREGABALIN
     Dosage: 100MG + 25MG
     Dates: start: 20170801
  2. DERMOL                             /01330701/ [Concomitant]
     Dosage: USE AS SOAP SUBSTITUTE
     Dates: start: 20170801
  3. NICORANDIL [Concomitant]
     Active Substance: NICORANDIL
     Dosage: 20 MG, BID
     Dates: start: 20170515
  4. RAMIPRIL. [Concomitant]
     Active Substance: RAMIPRIL
     Dosage: 10 MG, QD
     Dates: start: 20170515
  5. ATENOLOL. [Concomitant]
     Active Substance: ATENOLOL
     Dosage: 25 MG, QD
     Dates: start: 20170515
  6. CHLORHEXIDINE GLUCONATE. [Concomitant]
     Active Substance: CHLORHEXIDINE GLUCONATE
     Dosage: 10 ML, BID
     Dates: start: 20170801
  7. CITALOPRAM [Concomitant]
     Active Substance: CITALOPRAM HYDROBROMIDE
     Dosage: EQUIVALENT TO 20MG TABLET, 40MG/ML
     Route: 048
     Dates: start: 20170801
  8. GLYCERYL TRINITRATE [Concomitant]
     Active Substance: NITROGLYCERIN
     Route: 060
     Dates: start: 20170323
  9. PARACETAMOL [Concomitant]
     Active Substance: ACETAMINOPHEN
     Dosage: TAKE ONE OR TWO TABLET(S) FOUR TIMES A DAY
     Dates: start: 20170515
  10. ATORVASTATIN [Concomitant]
     Active Substance: ATORVASTATIN
     Dosage: 40 MG, QD
     Dates: start: 20170515
  11. AMLODIPINE [Concomitant]
     Active Substance: AMLODIPINE BESYLATE
     Dosage: 5 MG, QD
     Dates: start: 20170515
  12. DOXAZOSIN [Concomitant]
     Active Substance: DOXAZOSIN\DOXAZOSIN MESYLATE
     Dosage: 4 MG, BID
     Dates: start: 20170801
  13. CLOPIDOGREL [Suspect]
     Active Substance: CLOPIDOGREL BISULFATE
     Indication: PRODUCT USED FOR UNKNOWN INDICATION
     Route: 048
  14. CHEMYDUR [Concomitant]
     Dates: start: 20161110
  15. MIRTAZAPINE. [Concomitant]
     Active Substance: MIRTAZAPINE
     Dosage: AT NIGHT
     Dates: start: 20170515
  16. BUMETANIDE. [Concomitant]
     Active Substance: BUMETANIDE
     Dosage: 1 MG, QD
     Dates: start: 20170515
  17. CODEINE [Concomitant]
     Active Substance: CODEINE
     Indication: PAIN
     Dosage: 1 WITH 2 PARACETAMOL FOUR TIMES A DAY
     Dates: start: 20170801
  18. DOCUSATE [Concomitant]
     Active Substance: DOCUSATE
     Indication: CONSTIPATION
     Dosage: TAKE TWO CAPSULES TWICE A DAY FOR CONSTIPATION
     Dates: start: 20170801
  19. LAXIDO [Concomitant]
     Active Substance: POLYETHYLENE GLYCOL 3350\POTASSIUM CHLORIDE\SODIUM BICARBONATE\SODIUM CHLORIDE
     Indication: CONSTIPATION
     Dosage: TAKE ONE EVERY DAY WHEN REQUIRED
     Dates: start: 20170801

REACTIONS (4)
  - Haemorrhage intracranial [Not Recovered/Not Resolved]
  - Muscle spasticity [Not Recovered/Not Resolved]
  - Brain midline shift [Unknown]
  - Dysphagia [Not Recovered/Not Resolved]

NARRATIVE: CASE EVENT DATE: 20170303
